FAERS Safety Report 16794697 (Version 2)
Quarter: 2019Q3

REPORT INFORMATION
  Report Type: Spontaneous
  Country: US (occurrence: US)
  Receive Date: 20190911
  Receipt Date: 20190917
  Transmission Date: 20191005
  Serious: No
  Sender: FDA-Public Use
  Company Number: US-PFIZER INC-2019383516

PATIENT
  Sex: Female

DRUGS (1)
  1. FUROSEMIDE. [Suspect]
     Active Substance: FUROSEMIDE
     Dosage: UNK

REACTIONS (6)
  - Rash macular [Recovering/Resolving]
  - Acne [Unknown]
  - Malaise [Unknown]
  - Erythema [Recovering/Resolving]
  - Feeling hot [Unknown]
  - Pruritus [Unknown]
